FAERS Safety Report 4355784-8 (Version None)
Quarter: 2004Q2

REPORT INFORMATION
  Report Type: 
  Country: None (occurrence: None)
  Receive Date: 20040505
  Receipt Date: 20040420
  Transmission Date: 20050107
  Serious: Yes (Other)
  Sender: FDA-Public Use
  Company Number: DEU-2004-0000810

PATIENT
  Age: 73 Year
  Sex: Female

DRUGS (20)
  1. MORPHINE SULFATE INJ [Suspect]
     Indication: POSTOPERATIVE ANALGESIA
     Dosage: 4 MG, SINGLE, EPIDURAL
     Route: 008
  2. HYDROCORTISONE [Concomitant]
  3. METOPROLOL (METOPROLOL) [Concomitant]
  4. FENTANYL [Concomitant]
  5. THIOPENTAL SODIUM [Concomitant]
  6. NITROUS OXIDE (NITROUS OXIDE) [Concomitant]
  7. OXYGEN (OXYGEN) [Concomitant]
  8. SODIUM CHLORIDE [Concomitant]
  9. PHENYLEPHRINE (PHENYLEPHRINE) [Concomitant]
  10. MANNITOL [Concomitant]
  11. NITROPRUSSIDE SODIUM (NITROPRUSSIDE SODIUM) [Concomitant]
  12. PROPRANOLOL [Concomitant]
  13. GLYCONITRON (GLYCERYL TRINITRATE) [Concomitant]
  14. RED BLOOD CELLS [Concomitant]
  15. ALBUMIN (HUMAN) [Concomitant]
  16. PLASMA (PLASMA) [Concomitant]
  17. PLATELETS [Concomitant]
  18. PROPOFOL [Concomitant]
  19. LIDOCAINE [Concomitant]
  20. EPINEPHRINE [Concomitant]

REACTIONS (5)
  - AREFLEXIA [None]
  - ELECTROCARDIOGRAM ST SEGMENT DEPRESSION [None]
  - HEART RATE DECREASED [None]
  - MOTOR DYSFUNCTION [None]
  - PARAPARESIS [None]
